APPROVED DRUG PRODUCT: Q-PAM
Active Ingredient: DIAZEPAM
Strength: 2MG
Dosage Form/Route: TABLET;ORAL
Application: A072431 | Product #001
Applicant: QUANTUM PHARMICS LTD
Approved: Apr 29, 1988 | RLD: No | RS: No | Type: DISCN